FAERS Safety Report 6421568-X (Version None)
Quarter: 2009Q4

REPORT INFORMATION
  Report Type: 
  Country: None (occurrence: None)
  Receive Date: 20091030
  Receipt Date: 20091019
  Transmission Date: 20100525
  Serious: Yes (Other)
  Sender: FDA-Public Use
  Company Number: JP-JNJFOC-20091008270

PATIENT
  Age: 25 Year
  Sex: Male

DRUGS (3)
  1. ITRACONAZOLE [Suspect]
     Indication: ASPERGILLOSIS
     Route: 065
  2. MICAFUNGIN SODIUM [Suspect]
     Indication: ASPERGILLOSIS
     Route: 065
  3. VORICONAZOLE [Suspect]
     Indication: ASPERGILLOSIS
     Route: 065

REACTIONS (3)
  - ASPERGILLOSIS [None]
  - BRONCHOPULMONARY ASPERGILLOSIS [None]
  - LUNG DISORDER [None]
